FAERS Safety Report 5417851-7 (Version None)
Quarter: 2007Q3

REPORT INFORMATION
  Report Type: 
  Country: None (occurrence: None)
  Receive Date: 20070817
  Receipt Date: 20070808
  Transmission Date: 20080115
  Serious: Yes (Other)
  Sender: FDA-Public Use
  Company Number: BR-JNJFOC-20070802626

PATIENT
  Age: 43 Year
  Sex: Female
  Weight: 75 kg

DRUGS (6)
  1. HALDOL [Suspect]
     Route: 048
  2. HALDOL [Suspect]
     Indication: PSYCHOTIC DISORDER
     Dosage: 180 DROPS PER DAY DECREASED TO 30 DROPS PER DAY
     Route: 048
  3. LEXAPRO [Concomitant]
     Indication: BIPOLAR DISORDER
  4. ZYPREXA [Concomitant]
     Indication: BIPOLAR DISORDER
  5. FENERGAN [Concomitant]
     Indication: PROPHYLAXIS
  6. CLONAZEPAM [Concomitant]

REACTIONS (7)
  - DYSKINESIA [None]
  - DYSPNOEA [None]
  - INCREASED APPETITE [None]
  - MYALGIA [None]
  - NUCHAL RIGIDITY [None]
  - RESTLESSNESS [None]
  - WEIGHT INCREASED [None]
